FAERS Safety Report 25690449 (Version 1)
Quarter: 2025Q3

REPORT INFORMATION
  Report Type: Spontaneous
  Country: US (occurrence: None)
  Receive Date: 20250815
  Receipt Date: 20250815
  Transmission Date: 20251020
  Serious: Yes (Other)
  Sender: FDA-CTU
  Company Number: None

PATIENT
  Age: 72 Year
  Sex: Female
  Weight: 88.2 kg

DRUGS (1)
  1. REMICADE [Suspect]
     Active Substance: INFLIXIMAB
     Indication: Sarcoidosis
     Route: 042
     Dates: start: 20250724, end: 20250815

REACTIONS (4)
  - Dyspnoea [None]
  - Back pain [None]
  - Infusion [None]
  - Speech disorder [None]

NARRATIVE: CASE EVENT DATE: 20250815
